FAERS Safety Report 17039601 (Version 1)
Quarter: 2019Q4

REPORT INFORMATION
  Report Type: Spontaneous
  Country: VG (occurrence: VG)
  Receive Date: 20191115
  Receipt Date: 20191115
  Transmission Date: 20200122
  Serious: Yes (Other)
  Sender: FDA-Public Use
  Company Number: VG-BAXTER-2019BAX022926

PATIENT
  Age: 37 Year
  Sex: Female

DRUGS (5)
  1. IFOSFAMIDE FOR INJECTION [Suspect]
     Active Substance: IFOSFAMIDE
     Indication: NEUROFIBROSARCOMA
     Dosage: THREE CYCLES
     Route: 065
     Dates: start: 201801, end: 201807
  2. DILANTIN [Suspect]
     Active Substance: PHENYTOIN
     Indication: PRODUCT USED FOR UNKNOWN INDICATION
     Route: 065
  3. MESNEX [Suspect]
     Active Substance: MESNA
     Indication: PRODUCT USED FOR UNKNOWN INDICATION
     Dosage: THREE CYCLES
     Route: 065
     Dates: start: 201801, end: 201807
  4. CARBOPLATIN. [Suspect]
     Active Substance: CARBOPLATIN
     Indication: NEUROFIBROSARCOMA
     Dosage: THREE CYCLES
     Route: 065
     Dates: start: 201801, end: 201807
  5. DOXIL [Suspect]
     Active Substance: DOXORUBICIN HYDROCHLORIDE
     Indication: NEUROFIBROSARCOMA
     Dosage: THREE CYCLES
     Route: 065
     Dates: start: 201801, end: 201807

REACTIONS (7)
  - Chest pain [Unknown]
  - Haemoptysis [Unknown]
  - Fatigue [Unknown]
  - Drug ineffective [Unknown]
  - Cough [Unknown]
  - Disease progression [Unknown]
  - Pain [Unknown]

NARRATIVE: CASE EVENT DATE: 201901
